FAERS Safety Report 9896559 (Version 1)
Quarter: 2014Q1

REPORT INFORMATION
  Report Type: Spontaneous
  Country: US (occurrence: US)
  Receive Date: 20140213
  Receipt Date: 20140213
  Transmission Date: 20141002
  Serious: No
  Sender: FDA-Public Use
  Company Number: US-BRISTOL-MYERS SQUIBB COMPANY-19106111

PATIENT
  Age: 43 Year
  Sex: Female
  Weight: 90.7 kg

DRUGS (6)
  1. ABATACEPT SUBQ INJECTION 125MG/ML [Suspect]
     Dosage: ORENCIA 125MG/ML PFS (4 PACK)
     Route: 058
  2. METHOTREXATE [Suspect]
     Dosage: WAS TAKING FOR 3 AND HALF YEARS.
  3. PLAQUENIL [Concomitant]
     Dosage: TABS
  4. TOPAMAX [Concomitant]
     Dosage: TABS
  5. SYNTHROID [Concomitant]
     Dosage: TABS
  6. IMITREX [Concomitant]
     Dosage: TABS

REACTIONS (2)
  - Nausea [Recovered/Resolved]
  - Vomiting [Recovered/Resolved]
